FAERS Safety Report 6059352-1 (Version None)
Quarter: 2009Q1

REPORT INFORMATION
  Report Type: 
  Country: None (occurrence: None)
  Receive Date: 20090128
  Receipt Date: 20090119
  Transmission Date: 20090719
  Serious: Yes (Other)
  Sender: FDA-Public Use
  Company Number: JPI-P-005905

PATIENT
  Age: 77 Year
  Sex: Female

DRUGS (1)
  1. XYREM [Suspect]
     Indication: DRUG USE FOR UNKNOWN INDICATION
     Dosage: 5 GM (2,5 GM, 2 IN 2 D), ORAL
     Route: 048
     Dates: start: 20031203

REACTIONS (1)
  - SHOULDER OPERATION [None]
